FAERS Safety Report 7313698-5 (Version None)
Quarter: 2011Q1

REPORT INFORMATION
  Report Type: 
  Country: None (occurrence: None)
  Receive Date: 20110225
  Receipt Date: 20110214
  Transmission Date: 20110831
  Serious: Yes (Other)
  Sender: FDA-Public Use
  Company Number: US-ELI_LILLY_AND_COMPANY-US201102004339

PATIENT
  Age: 78 Year
  Sex: Female

DRUGS (4)
  1. RITALIN [Concomitant]
  2. ANTIDEPRESSANTS [Concomitant]
  3. PROZAC [Suspect]
     Indication: POST-TRAUMATIC STRESS DISORDER
     Dosage: 40 MG, UNK
     Dates: start: 19910101, end: 20100101
  4. PRISTIQ [Concomitant]

REACTIONS (6)
  - OFF LABEL USE [None]
  - BLINDNESS [None]
  - BLOOD PRESSURE INCREASED [None]
  - MENINGIOMA [None]
  - FEELING ABNORMAL [None]
  - MOOD ALTERED [None]
